FAERS Safety Report 8599713-X (Version None)
Quarter: 2012Q3

REPORT INFORMATION
  Report Type: 
  Country: None (occurrence: None)
  Receive Date: 20120816
  Receipt Date: 20120815
  Transmission Date: 20120928
  Serious: Yes (Hospitalization, Other)
  Sender: FDA-Public Use
  Company Number: CA-ABBOTT-12P-028-0947573-00

PATIENT
  Sex: Female

DRUGS (2)
  1. HUMIRA [Suspect]
     Indication: RHEUMATOID ARTHRITIS
     Route: 058
     Dates: start: 20060609, end: 20120101
  2. HUMIRA [Suspect]
     Route: 058
     Dates: start: 20120729

REACTIONS (4)
  - SINUS DISORDER [None]
  - INFLUENZA [None]
  - BRONCHITIS [None]
  - ARTERIAL OCCLUSIVE DISEASE [None]
